FAERS Safety Report 8171715-7 (Version None)
Quarter: 2012Q1

REPORT INFORMATION
  Report Type: 
  Country: None (occurrence: None)
  Receive Date: 20120228
  Receipt Date: 20120220
  Transmission Date: 20120608
  Serious: Yes (Hospitalization)
  Sender: FDA-Public Use
  Company Number: DE-ABBOTT-12P-062-0906493-00

PATIENT
  Sex: Female

DRUGS (4)
  1. HUMIRA [Suspect]
     Indication: ANKYLOSING SPONDYLITIS
     Route: 058
     Dates: start: 20120220
  2. ANTIHYPERTENSIVES [Concomitant]
     Indication: PRODUCT USED FOR UNKNOWN INDICATION
  3. VOLTAREN [Concomitant]
     Indication: PRODUCT USED FOR UNKNOWN INDICATION
  4. CORTISONE ACETATE [Concomitant]
     Indication: PRODUCT USED FOR UNKNOWN INDICATION

REACTIONS (5)
  - PRESYNCOPE [None]
  - INFLAMMATORY MARKER INCREASED [None]
  - OVERDOSE [None]
  - ARTHRALGIA [None]
  - UNRESPONSIVE TO STIMULI [None]
